FAERS Safety Report 8863391 (Version 2)
Quarter: 2013Q1

REPORT INFORMATION
  Report Type: Spontaneous
  Country: US (occurrence: US)
  Receive Date: 20121024
  Receipt Date: 20130111
  Transmission Date: 20140127
  Serious: Yes (Other)
  Sender: FDA-Public Use
  Company Number: US-PFIZER INC-2012261136

PATIENT
  Sex: Male

DRUGS (1)
  1. TOVIAZ [Suspect]
     Indication: POLLAKIURIA
     Dosage: UNK

REACTIONS (4)
  - Urinary retention [Unknown]
  - Swollen tongue [Unknown]
  - Lip swelling [Unknown]
  - Glossodynia [Unknown]
